FAERS Safety Report 6597128 (Version 25)
Quarter: 2014Q2

REPORT INFORMATION
  Report Type: Spontaneous
  Country: US (occurrence: US)
  Receive Date: 20080328
  Receipt Date: 20140403
  Transmission Date: 20141212
  Serious: Yes (Hospitalization, Other)
  Sender: FDA-Public Use
  Company Number: PHEH2008US02876

PATIENT
  Age: 63 Year
  Sex: Female
  Weight: 88.44 kg

DRUGS (62)
  1. ZOMETA [Suspect]
     Indication: NEOPLASM MALIGNANT
     Dosage: 4 MG, QMO
     Route: 042
     Dates: start: 20020924, end: 2007
  2. AREDIA [Suspect]
  3. ANCEF [Concomitant]
     Dosage: 1 G,
     Dates: start: 20060522
  4. ATIVAN [Concomitant]
  5. VERAPAMIL [Concomitant]
  6. ZOFRAN [Concomitant]
     Dosage: 8 MG,
     Route: 042
     Dates: start: 20060523
  7. TYLENOL [Concomitant]
     Dosage: 975 MG,
     Dates: start: 20060523
  8. CALCIUM GLUCONATE [Concomitant]
     Dates: start: 20060523
  9. PROCRIT [Concomitant]
     Dosage: 40000 U,
     Dates: start: 20060523
  10. VERSED [Concomitant]
     Dosage: 1 MG,
     Dates: start: 20060523
  11. FENTANYL [Concomitant]
     Dosage: 50 UG,
     Dates: start: 20060523
  12. ARANESP [Concomitant]
  13. CHEMOTHERAPEUTICS NOS [Concomitant]
  14. HYDROCODONE [Concomitant]
     Indication: PAIN
     Dosage: 10 MG,
  15. METHADONE [Concomitant]
     Indication: PAIN
  16. FUROSEMIDE [Concomitant]
  17. LORAZEPAM [Concomitant]
     Indication: ANXIETY
  18. KLOR-CON [Concomitant]
     Indication: BLOOD POTASSIUM
  19. GABAPENTIN [Concomitant]
  20. AMITRIPTYLINE [Concomitant]
     Indication: PAIN
  21. CELEXA [Concomitant]
     Indication: DEPRESSION
  22. DIOVAN HCT [Concomitant]
     Indication: HYPERTENSION
  23. CLINDAMYCIN [Concomitant]
  24. CYMBALTA [Concomitant]
     Dosage: 60 MG,
  25. HYDROXYZINE [Concomitant]
     Dosage: 25 MG, BID
  26. DEPLIN [Concomitant]
     Dosage: 7.5 MG, ONCE/SINGLE
  27. LUNESTA [Concomitant]
     Dosage: 3 MG,
  28. CITALOPRAM [Concomitant]
     Dosage: 40 MG, ONCE/SINGLE
  29. MULTIVITAMINS [Concomitant]
  30. VITAMIN B [Concomitant]
  31. NEURONTIN [Concomitant]
     Dosage: 300 MG, BID
  32. MELPHALAN [Concomitant]
     Dosage: 340 MG,
     Dates: start: 2002
  33. THALIDOMIDE [Concomitant]
     Dosage: 150 MG,
     Dates: start: 200505, end: 200601
  34. THALIDOMIDE [Concomitant]
     Dosage: 100 MG, UNK
  35. THALIDOMIDE [Concomitant]
     Dosage: 50 MG, UNK
  36. PREDNISONE [Concomitant]
     Dates: start: 2002
  37. DECADRON                                /CAN/ [Concomitant]
     Dosage: 40 MG,
  38. ADRIAMYCIN [Concomitant]
  39. VELCADE [Concomitant]
  40. NIFEREX (POLYSACCHARIDE-IRON COMPLEX) [Concomitant]
  41. CLAFORAN [Concomitant]
  42. PROTONIX ^PHARMACIA^ [Concomitant]
  43. ROCEPHIN [Concomitant]
  44. PHENERGAN ^AVENTIS PHARMA^ [Concomitant]
  45. LEXAPRO [Concomitant]
  46. CAPTOPRIL [Concomitant]
  47. PROPRANOLOL [Concomitant]
  48. VIOXX [Concomitant]
  49. EFFEXOR [Concomitant]
  50. MAGNESIUM [Concomitant]
  51. K-DUR [Concomitant]
  52. TYLENOL W/CODEINE NO. 3 [Concomitant]
  53. LACTULOSE [Concomitant]
  54. PREVACID [Concomitant]
  55. ULTRAM [Concomitant]
  56. ATENOLOL [Concomitant]
  57. ZOLOFT (SERTRALINE HYDROCHLORIDE) [Concomitant]
  58. ALPHA LIPOIC ACID [Concomitant]
     Dosage: 1 DF, QD
  59. ANUCORT-HC [Concomitant]
     Dosage: 25 MG, TID
     Route: 054
  60. BISOPROLOL FUMARATE [Concomitant]
     Dosage: 1 DF, QD
     Route: 048
  61. TEGRETOL [Concomitant]
     Dosage: 200 MG, Q12H
     Route: 048
  62. MIRALAX [Concomitant]

REACTIONS (125)
  - Venous thrombosis limb [Unknown]
  - Upper respiratory tract infection [Recovering/Resolving]
  - Cough [Recovering/Resolving]
  - Pyrexia [Recovering/Resolving]
  - Plasma cell myeloma [Unknown]
  - Myelodysplastic syndrome [Unknown]
  - Lumbar spinal stenosis [Unknown]
  - Intervertebral disc degeneration [Unknown]
  - Pleuritic pain [Unknown]
  - Osteonecrosis of jaw [Unknown]
  - Cardiomegaly [Unknown]
  - Gastrooesophageal reflux disease [Unknown]
  - Haematochezia [Unknown]
  - Pain [Unknown]
  - Scar [Unknown]
  - Mastication disorder [Unknown]
  - Gingival pain [Unknown]
  - Bone disorder [Unknown]
  - Emotional distress [Unknown]
  - Anxiety [Unknown]
  - Injury [Unknown]
  - Depression [Unknown]
  - Facet joint syndrome [Unknown]
  - Thrombosis in device [Unknown]
  - Pain in jaw [Unknown]
  - Hypertension [Unknown]
  - Osteoporosis [Unknown]
  - Monoclonal immunoglobulin present [Unknown]
  - Bladder cyst [Unknown]
  - Renal cyst [Unknown]
  - Osteitis [Recovering/Resolving]
  - Cellulitis staphylococcal [Unknown]
  - Decubitus ulcer [Unknown]
  - Vision blurred [Unknown]
  - Increased tendency to bruise [Unknown]
  - Anaemia [Unknown]
  - Syncope [Unknown]
  - Nausea [Unknown]
  - Influenza [Unknown]
  - Blood pressure increased [Unknown]
  - Nervousness [Unknown]
  - Arthralgia [Unknown]
  - Musculoskeletal discomfort [Unknown]
  - Affective disorder [Unknown]
  - Insomnia [Unknown]
  - Bronchitis [Unknown]
  - Acute sinusitis [Unknown]
  - Tremor [Unknown]
  - Psychomotor hyperactivity [Unknown]
  - Malaise [Unknown]
  - Oedema [Unknown]
  - Cystitis [Unknown]
  - Abdominal pain [Unknown]
  - Temporomandibular joint syndrome [Unknown]
  - Ear congestion [Unknown]
  - Dysphagia [Recovered/Resolved]
  - Constipation [Unknown]
  - Diarrhoea [Unknown]
  - Headache [Unknown]
  - Thrombocytopenia [Unknown]
  - Bone pain [Unknown]
  - Dental caries [Unknown]
  - Neuropathy peripheral [Unknown]
  - Leukopenia [Unknown]
  - Toothache [Unknown]
  - Weight increased [Unknown]
  - Oral pain [Unknown]
  - Hyperaesthesia [Unknown]
  - Paraesthesia [Unknown]
  - Pharyngitis [Unknown]
  - Arthritis [Unknown]
  - Cerebral atrophy [Unknown]
  - Compression fracture [Unknown]
  - Hot flush [Unknown]
  - Night sweats [Unknown]
  - Hypoacusis [Unknown]
  - Dyspnoea exertional [Unknown]
  - Asthma [Unknown]
  - Haemorrhoids [Unknown]
  - Incontinence [Unknown]
  - Ulcer [Unknown]
  - Gait disturbance [Unknown]
  - Fall [Unknown]
  - Confusional state [Unknown]
  - Hiatus hernia [Unknown]
  - Fungal infection [Unknown]
  - Obesity [Unknown]
  - Rectocele [Unknown]
  - Cystocele [Unknown]
  - Abdominal distension [Unknown]
  - Onychomycosis [Unknown]
  - Adrenal insufficiency [Unknown]
  - Diastolic dysfunction [Unknown]
  - Gastrointestinal haemorrhage [Unknown]
  - Pulmonary calcification [Unknown]
  - Local swelling [Recovering/Resolving]
  - Rectal haemorrhage [Unknown]
  - Sinus congestion [Unknown]
  - Hypokalaemia [Unknown]
  - Bladder prolapse [Unknown]
  - Lung infiltration [Unknown]
  - Osteolysis [Unknown]
  - Osteopenia [Unknown]
  - Anorectal disorder [Unknown]
  - Proctalgia [Unknown]
  - Breast mass [Unknown]
  - Breast calcifications [Unknown]
  - Spinal osteoarthritis [Unknown]
  - Kyphosis [Unknown]
  - Breast cyst [Unknown]
  - Ear infection [Unknown]
  - Aortic calcification [Unknown]
  - Arteriosclerosis [Unknown]
  - Scoliosis [Unknown]
  - Intervertebral disc space narrowing [Unknown]
  - Neck pain [Unknown]
  - Renal failure [Unknown]
  - Atelectasis [Unknown]
  - Mental status changes [Unknown]
  - Pulmonary fibrosis [Unknown]
  - Interstitial lung disease [Unknown]
  - Umbilical hernia [Unknown]
  - Cerebral ventricle dilatation [Unknown]
  - Cerebral disorder [Unknown]
  - Diverticulum intestinal [Unknown]
